FAERS Safety Report 14633447 (Version 2)
Quarter: 2018Q4

REPORT INFORMATION
  Report Type: Spontaneous
  Country: FR (occurrence: FR)
  Receive Date: 20180313
  Receipt Date: 20181023
  Transmission Date: 20190204
  Serious: Yes (Other)
  Sender: FDA-Public Use
  Company Number: FR-MERCK KGAA-2043668

PATIENT
  Age: 51 Year
  Sex: Female

DRUGS (1)
  1. EUTHYROX [Suspect]
     Active Substance: LEVOTHYROXINE SODIUM
     Indication: PRODUCT USED FOR UNKNOWN INDICATION

REACTIONS (17)
  - Fatigue [None]
  - Myalgia [Not Recovered/Not Resolved]
  - Loss of personal independence in daily activities [None]
  - Amnesia [None]
  - Thyroxine free increased [None]
  - Apathy [None]
  - Depression [None]
  - Social problem [None]
  - Aphasia [None]
  - Tendonitis [Not Recovered/Not Resolved]
  - Personal relationship issue [None]
  - Nausea [None]
  - Dizziness [None]
  - Abdominal pain upper [None]
  - Decreased appetite [None]
  - Loss of libido [None]
  - Blood thyroid stimulating hormone decreased [None]

NARRATIVE: CASE EVENT DATE: 20170922
